FAERS Safety Report 7009535-9 (Version None)
Quarter: 2010Q3

REPORT INFORMATION
  Report Type: 
  Country: None (occurrence: None)
  Receive Date: 20100923
  Receipt Date: 20100915
  Transmission Date: 20110219
  Serious: Yes (Hospitalization, Other)
  Sender: FDA-Public Use
  Company Number: PHHY2010BR62001

PATIENT
  Sex: Male

DRUGS (3)
  1. FORASEQ [Suspect]
     Indication: ASTHMA
     Dosage: TWICE A DAY
  2. FORASEQ [Suspect]
     Indication: EMPHYSEMA
     Dosage: THRICE A DAY
  3. CLENIL COMPOSITUM [Concomitant]
     Dosage: UNK

REACTIONS (5)
  - ASTHMA [None]
  - BLOOD GLUCOSE INCREASED [None]
  - DIZZINESS [None]
  - DYSPNOEA [None]
  - TYPE 2 DIABETES MELLITUS [None]
